FAERS Safety Report 21629793 (Version 1)
Quarter: 2022Q4

REPORT INFORMATION
  Report Type: Spontaneous
  Country: US (occurrence: US)
  Receive Date: 20221122
  Receipt Date: 20221122
  Transmission Date: 20230113
  Serious: No
  Sender: FDA-Public Use
  Company Number: US-ORGANON-O2211USA001072

PATIENT
  Sex: Female

DRUGS (1)
  1. NEXPLANON [Suspect]
     Active Substance: ETONOGESTREL
     Indication: Contraception
     Dosage: 1 IMPLANT/68 MG EVERY 3 YEARS
     Route: 059
     Dates: start: 20220420, end: 20221103

REACTIONS (3)
  - Implant site pruritus [Unknown]
  - Implant site pain [Unknown]
  - Implant site hypersensitivity [Unknown]

NARRATIVE: CASE EVENT DATE: 20220101
